FAERS Safety Report 5730386-7 (Version None)
Quarter: 2008Q2

REPORT INFORMATION
  Report Type: 
  Country: None (occurrence: None)
  Receive Date: 20080505
  Receipt Date: 20080505
  Transmission Date: 20081010
  Serious: No
  Sender: FDA-Public Use
  Company Number: None

PATIENT
  Age: 57 Year
  Sex: Female
  Weight: 90.7194 kg

DRUGS (1)
  1. ZETIA [Suspect]
     Indication: LDL/HDL RATIO
     Dosage: 10MG DAILY PO
     Route: 048

REACTIONS (7)
  - AGITATION [None]
  - ANXIETY [None]
  - IRRITABILITY [None]
  - MOOD SWINGS [None]
  - PARTNER STRESS [None]
  - QUALITY OF LIFE DECREASED [None]
  - SLEEP DISORDER [None]
